FAERS Safety Report 11844642 (Version 1)
Quarter: 2015Q4

REPORT INFORMATION
  Report Type: Spontaneous
  Country: GB (occurrence: GB)
  Receive Date: 20151217
  Receipt Date: 20151217
  Transmission Date: 20160305
  Serious: Yes (Other)
  Sender: FDA-Public Use
  Company Number: GB-JNJFOC-20151209751

PATIENT
  Age: 32 Year
  Sex: Female

DRUGS (1)
  1. CILEST [Suspect]
     Active Substance: ETHINYL ESTRADIOL\NORGESTIMATE
     Indication: PRODUCT USED FOR UNKNOWN INDICATION
     Dosage: FOR 3 AND A HALF YEARS.
     Route: 065

REACTIONS (2)
  - Nausea [Unknown]
  - Fibromyalgia [Unknown]
